FAERS Safety Report 22654563 (Version 1)
Quarter: 2023Q2

REPORT INFORMATION
  Report Type: Spontaneous
  Country: US (occurrence: US)
  Receive Date: 20230629
  Receipt Date: 20230629
  Transmission Date: 20230721
  Serious: No
  Sender: FDA-Public Use
  Company Number: US-BAYER-2023A088751

PATIENT
  Age: 67 Year
  Sex: Female

DRUGS (1)
  1. MIRALAX [Suspect]
     Active Substance: POLYETHYLENE GLYCOL 3350
     Indication: Gastrointestinal disorder
     Dosage: 15 G
     Route: 048
     Dates: start: 20230622, end: 20230622

REACTIONS (4)
  - Palpitations [Recovered/Resolved]
  - Heart rate increased [Not Recovered/Not Resolved]
  - Feeling drunk [Unknown]
  - Nausea [None]
